FAERS Safety Report 15874093 (Version 1)
Quarter: 2019Q1

REPORT INFORMATION
  Report Type: Other
  Country: US (occurrence: US)
  Receive Date: 20190126
  Receipt Date: 20190126
  Transmission Date: 20190417
  Serious: No
  Sender: FDA-Public Use
  Company Number: US-ACORDA-ACO_151257_2018

PATIENT
  Sex: Female
  Weight: 90.7 kg

DRUGS (6)
  1. 4-AMINOPYRIDINE [Suspect]
     Active Substance: DALFAMPRIDINE
     Indication: GAIT DISTURBANCE
     Dosage: UNK
     Route: 048
     Dates: start: 201801
  2. AMPYRA [Suspect]
     Active Substance: DALFAMPRIDINE
     Indication: GAIT DISTURBANCE
     Dosage: 10 MG, BID
     Route: 048
     Dates: end: 201801
  3. 4-AMINOPYRIDINE [Suspect]
     Active Substance: DALFAMPRIDINE
     Dosage: 8 MG
     Route: 048
     Dates: start: 201803
  4. 4-AMINOPYRIDINE [Suspect]
     Active Substance: DALFAMPRIDINE
     Dosage: 9 MG
     Route: 048
  5. 4-AMINOPYRIDINE [Suspect]
     Active Substance: DALFAMPRIDINE
     Indication: MULTIPLE SCLEROSIS
     Dosage: 10 MG, BID
     Route: 048
  6. AMPYRA [Suspect]
     Active Substance: DALFAMPRIDINE
     Indication: MULTIPLE SCLEROSIS
     Dosage: 10 MG, BID
     Route: 048
     Dates: start: 2010

REACTIONS (4)
  - Condition aggravated [Unknown]
  - Therapy cessation [Unknown]
  - Product dose omission [Unknown]
  - Neuralgia [Unknown]
